FAERS Safety Report 12621218 (Version 1)
Quarter: 2016Q3

REPORT INFORMATION
  Report Type: Spontaneous
  Country: US (occurrence: None)
  Receive Date: 20160803
  Receipt Date: 20160803
  Transmission Date: 20161109
  Serious: Yes (Disabling)
  Sender: FDA-Public Use
  Company Number: None

PATIENT
  Age: 23 Year
  Sex: Male
  Weight: 113.4 kg

DRUGS (1)
  1. AMOXICILLIN, 250 MG TEVA [Suspect]
     Active Substance: AMOXICILLIN
     Indication: PHARYNGITIS
     Route: 048
     Dates: start: 20160314, end: 20160323

REACTIONS (1)
  - Dysphemia [None]

NARRATIVE: CASE EVENT DATE: 20160321
